FAERS Safety Report 8502034-4 (Version None)
Quarter: 2012Q3

REPORT INFORMATION
  Report Type: 
  Country: None (occurrence: None)
  Receive Date: 20120711
  Receipt Date: 20120621
  Transmission Date: 20120928
  Serious: No
  Sender: FDA-Public Use
  Company Number: CA-JNJFOC-20110911072

PATIENT
  Sex: Female
  Weight: 62 kg

DRUGS (10)
  1. ASPIRIN [Concomitant]
     Route: 065
  2. REMICADE [Suspect]
     Indication: RHEUMATOID ARTHRITIS
     Route: 042
     Dates: start: 20050426
  3. REMICADE [Suspect]
     Route: 042
     Dates: start: 20080109
  4. METOPROLOL SUCCINATE [Concomitant]
     Route: 065
  5. LIPITOR [Concomitant]
     Route: 065
  6. METHOTREXATE [Concomitant]
     Route: 065
  7. PLAVIX [Concomitant]
     Route: 065
  8. FOLIC ACID [Concomitant]
     Route: 065
  9. ACETAMINOPHEN [Concomitant]
     Route: 065
  10. PREDNISONE [Concomitant]
     Route: 065

REACTIONS (2)
  - CYSTITIS [None]
  - URINARY TRACT INFECTION [None]
